FAERS Safety Report 16611212 (Version 1)
Quarter: 2019Q3

REPORT INFORMATION
  Report Type: Spontaneous
  Country: US (occurrence: US)
  Receive Date: 20190722
  Receipt Date: 20190722
  Transmission Date: 20191004
  Serious: No
  Sender: FDA-Public Use
  Company Number: US-SA-2019SA195857

PATIENT
  Age: 42 Year
  Sex: Female

DRUGS (2)
  1. TUBERSOL [Suspect]
     Active Substance: TUBERCULIN PURIFIED PROTEIN DERIVATIVE
     Indication: TUBERCULIN TEST
     Dosage: UNK, QD
     Route: 030
     Dates: start: 20190716, end: 20190716
  2. DIPHTHERIA, TETANUS AND ACELLULAR PERTUSSIS VACCINE [Concomitant]
     Indication: IMMUNISATION
     Route: 065
     Dates: start: 20190716

REACTIONS (3)
  - Ear discomfort [Unknown]
  - Incorrect route of product administration [Unknown]
  - Dizziness [Unknown]
